FAERS Safety Report 4624697-6 (Version None)
Quarter: 2005Q1

REPORT INFORMATION
  Report Type: 
  Country: None (occurrence: None)
  Receive Date: 20050107
  Receipt Date: 20041108
  Transmission Date: 20050727
  Serious: No
  Sender: FDA-Public Use
  Company Number: 233808K04USA

PATIENT
  Age: 34 Year
  Sex: Female

DRUGS (5)
  1. REBIF [Suspect]
     Indication: MULTIPLE SCLEROSIS
     Dosage: 8.8 MCG, ONCE
     Dates: start: 20040712, end: 20040712
  2. ALLEGRA [Concomitant]
  3. CELEBREX [Concomitant]
  4. BEXTRA [Concomitant]
  5. ^TROMODOL^  (PAIN MEDICATION) (ALL OTHER THERAPEUTIC PRODUCTS) [Concomitant]

REACTIONS (1)
  - BRONCHOSPASM [None]
